FAERS Safety Report 9056109 (Version 1)
Quarter: 2013Q1

REPORT INFORMATION
  Report Type: Spontaneous
  Country: FI (occurrence: FI)
  Receive Date: 20130205
  Receipt Date: 20130205
  Transmission Date: 20140127
  Serious: Yes (Hospitalization)
  Sender: FDA-Public Use
  Company Number: FI-ELI_LILLY_AND_COMPANY-FI201301003348

PATIENT
  Sex: Female

DRUGS (15)
  1. FORSTEO [Suspect]
     Indication: OSTEOPOROSIS
     Dosage: 20 UG, QD
     Route: 058
     Dates: start: 20120424
  2. FURESIS [Concomitant]
     Indication: DIURETIC THERAPY
     Dosage: UNK, UNKNOWN
     Route: 065
  3. CARDACE [Concomitant]
     Indication: BLOOD PRESSURE
     Dosage: UNK, UNKNOWN
     Route: 065
  4. SINGULAIR [Concomitant]
     Indication: ASTHMA
     Dosage: UNK, UNKNOWN
     Route: 065
  5. AERIUS [Concomitant]
     Indication: ASTHMA
     Dosage: UNK, UNKNOWN
     Route: 065
  6. ERDOPECT [Concomitant]
     Indication: COUGH
     Dosage: UNK, UNKNOWN
     Route: 065
  7. KALCIPOS-D [Concomitant]
     Dosage: UNK, UNKNOWN
     Route: 065
  8. OMEPRAZOL [Concomitant]
     Indication: GASTRIC ULCER
     Dosage: UNK, UNKNOWN
     Route: 065
  9. LYRICA [Concomitant]
     Indication: NEURALGIA
     Dosage: UNK, UNKNOWN
     Route: 065
  10. PARATABS [Concomitant]
     Indication: PAIN
     Dosage: UNK, UNKNOWN
     Route: 065
  11. MIACALCIC [Concomitant]
     Indication: OSTEOPOROSIS
     Dosage: UNK, UNKNOWN
     Route: 065
  12. PREDNISOLON [Concomitant]
     Indication: RHEUMATIC DISORDER
     Dosage: UNK, UNKNOWN
     Route: 065
  13. SIMVASTATIN [Concomitant]
     Indication: BLOOD CHOLESTEROL
     Dosage: UNK, UNKNOWN
     Route: 065
  14. MAREVAN [Concomitant]
     Indication: THROMBOSIS PROPHYLAXIS
     Dosage: UNK, UNKNOWN
     Route: 065
  15. ORMOX [Concomitant]
     Indication: CARDIAC FAILURE
     Dosage: UNK, UNKNOWN
     Route: 065

REACTIONS (1)
  - Anaemia [Not Recovered/Not Resolved]
